FAERS Safety Report 7025194-3 (Version None)
Quarter: 2010Q3

REPORT INFORMATION
  Report Type: 
  Country: None (occurrence: None)
  Receive Date: 20100916
  Receipt Date: 20100629
  Transmission Date: 20110219
  Serious: Yes (Hospitalization)
  Sender: FDA-Public Use
  Company Number: DKLU1063277

PATIENT
  Age: 1 Year
  Sex: Female

DRUGS (1)
  1. SABRIL [Suspect]
     Indication: INFANTILE SPASMS
     Dosage: ORAL
     Route: 048
     Dates: start: 20100608, end: 20100610

REACTIONS (1)
  - SOMNOLENCE [None]
